FAERS Safety Report 6578709-3 (Version None)
Quarter: 2010Q1

REPORT INFORMATION
  Report Type: 
  Country: None (occurrence: None)
  Receive Date: 20100211
  Receipt Date: 20100201
  Transmission Date: 20100710
  Serious: Yes (Hospitalization, Other)
  Sender: FDA-Public Use
  Company Number: GB-JNJFOC-20070303221

PATIENT
  Sex: Male
  Weight: 34 kg

DRUGS (14)
  1. REMICADE [Suspect]
     Indication: CROHN'S DISEASE
     Dosage: 5 MG/KG
     Route: 042
  2. SOLU-CORTEF [Suspect]
     Indication: DRUG USE FOR UNKNOWN INDICATION
  3. IMURAN [Suspect]
     Indication: CROHN'S DISEASE
     Route: 048
  4. OMEPRAZOLE [Concomitant]
     Indication: DYSPEPSIA
     Route: 048
  5. OMEPRAZOLE [Concomitant]
     Indication: CROHN'S DISEASE
     Route: 048
  6. HYDROCORTISONE [Concomitant]
     Indication: CROHN'S DISEASE
     Route: 042
  7. TPN [Concomitant]
     Route: 042
  8. POTASSIUM [Concomitant]
     Route: 042
  9. SULPHATE [Concomitant]
  10. MEBEVERINE [Concomitant]
     Indication: CROHN'S DISEASE
  11. PREDNISOLONE [Concomitant]
     Indication: CROHN'S DISEASE
     Route: 048
  12. PYRIDOXINE HYDROCHLORIDE [Concomitant]
     Route: 042
  13. NICOTINAMIDE [Concomitant]
     Route: 042
  14. TYROSINE [Concomitant]
     Route: 042

REACTIONS (4)
  - CONDITION AGGRAVATED [None]
  - CROHN'S DISEASE [None]
  - GRAND MAL CONVULSION [None]
  - REVERSIBLE POSTERIOR LEUKOENCEPHALOPATHY SYNDROME [None]
